FAERS Safety Report 18500973 (Version 1)
Quarter: 2020Q4

REPORT INFORMATION
  Report Type: Spontaneous
  Country: US (occurrence: US)
  Receive Date: 20201113
  Receipt Date: 20201113
  Transmission Date: 20210114
  Serious: Yes (Hospitalization)
  Sender: FDA-Public Use
  Company Number: NVSC2020US297734

PATIENT

DRUGS (2)
  1. LETROZOLE. [Suspect]
     Active Substance: LETROZOLE
     Indication: BREAST CANCER
     Dosage: 2.5 MG, QD
     Route: 048
     Dates: start: 20181020, end: 20200410
  2. LETROZOLE. [Suspect]
     Active Substance: LETROZOLE
     Dosage: 2.5 MG, QD
     Route: 048
     Dates: start: 20200413

REACTIONS (10)
  - Dizziness [Unknown]
  - Gastrointestinal disorder [Unknown]
  - Proctalgia [Unknown]
  - Dehydration [Unknown]
  - Nausea [Recovered/Resolved]
  - Pleural effusion [Unknown]
  - Vomiting [Recovered/Resolved]
  - Constipation [Unknown]
  - Insomnia [Unknown]
  - Blood creatinine increased [Unknown]

NARRATIVE: CASE EVENT DATE: 20200410
